FAERS Safety Report 18123527 (Version 1)
Quarter: 2020Q3

REPORT INFORMATION
  Report Type: Spontaneous
  Country: US (occurrence: US)
  Receive Date: 20200806
  Receipt Date: 20200806
  Transmission Date: 20201103
  Serious: Yes (Death)
  Sender: FDA-Public Use
  Company Number: None

PATIENT
  Age: 71 Year
  Sex: Female

DRUGS (1)
  1. HYCAMTIN [Suspect]
     Active Substance: TOPOTECAN HYDROCHLORIDE
     Dosage: ?          OTHER DOSE:4 CAPSULES;?
     Route: 048
     Dates: start: 20200714, end: 20200802

REACTIONS (1)
  - Death [None]

NARRATIVE: CASE EVENT DATE: 20200802
